FAERS Safety Report 20513041 (Version 2)
Quarter: 2023Q1

REPORT INFORMATION
  Report Type: Spontaneous
  Country: US (occurrence: US)
  Receive Date: 20220224
  Receipt Date: 20230307
  Transmission Date: 20230417
  Serious: No
  Sender: FDA-Public Use
  Company Number: US-AMNEAL PHARMACEUTICALS-2021-AMRX-00546

PATIENT
  Sex: Female

DRUGS (4)
  1. RYTARY [Suspect]
     Active Substance: CARBIDOPA\LEVODOPA
     Indication: Parkinson^s disease
     Dosage: 23.75/95 MG, 1 CAPSULES, TID
     Route: 048
     Dates: start: 202101, end: 2021
  2. RYTARY [Suspect]
     Active Substance: CARBIDOPA\LEVODOPA
     Dosage: 23.75/95 MG 1 CAPSULE WITH 36.25/145 MG 1 CAPSULE EACH STRENGTH TID
     Route: 048
     Dates: start: 2021, end: 2021
  3. RYTARY [Suspect]
     Active Substance: CARBIDOPA\LEVODOPA
     Dosage: 23.75/95 MG 1 CAPSULE WITH 36.25/145 MG 1 CAPSULE EACH STRENGTH TID
     Route: 048
     Dates: start: 2021
  4. RYTARY [Suspect]
     Active Substance: CARBIDOPA\LEVODOPA
     Dosage: 36.25/145 MG, 2 CAPSULES, TID
     Route: 048
     Dates: start: 202103

REACTIONS (5)
  - Feeling abnormal [Recovering/Resolving]
  - Feeling jittery [Recovering/Resolving]
  - Musculoskeletal stiffness [Not Recovered/Not Resolved]
  - Dizziness [Recovering/Resolving]
  - Muscle rigidity [Not Recovered/Not Resolved]

NARRATIVE: CASE EVENT DATE: 20210101
